FAERS Safety Report 18350429 (Version 3)
Quarter: 2020Q4

REPORT INFORMATION
  Report Type: Report from Study
  Country: US (occurrence: US)
  Receive Date: 20201006
  Receipt Date: 20201201
  Transmission Date: 20210114
  Serious: Yes (Other)
  Sender: FDA-Public Use
  Company Number: US-PFIZER INC-2020382471

PATIENT

DRUGS (4)
  1. GELFOAM [Suspect]
     Active Substance: GELATIN\THROMBIN HUMAN
     Indication: HAEMOSTASIS
  2. GELFOAM [Suspect]
     Active Substance: GELATIN\THROMBIN HUMAN
     Indication: POST PROCEDURAL HAEMORRHAGE
     Dosage: UNK
  3. THROMBIN [Suspect]
     Active Substance: THROMBIN
     Indication: POST PROCEDURAL HAEMORRHAGE
     Dosage: 1000 IU/ML (SOLUTION)
  4. THROMBIN [Suspect]
     Active Substance: THROMBIN
     Indication: HAEMOSTASIS

REACTIONS (1)
  - Treatment failure [Unknown]
